FAERS Safety Report 17655702 (Version 1)
Quarter: 2020Q2

REPORT INFORMATION
  Report Type: Report from Study
  Country: NL (occurrence: NL)
  Receive Date: 20200410
  Receipt Date: 20200410
  Transmission Date: 20200713
  Serious: Yes (Death)
  Sender: FDA-Public Use
  Company Number: NL-CURIUM-201000504

PATIENT
  Age: 62 Year

DRUGS (1)
  1. OCTREOSCAN [Suspect]
     Active Substance: INDIUM IN-111 CHLORIDE\INDIUM IN-111 PENTETREOTIDE
     Indication: CARCINOID TUMOUR
     Dosage: 106.01 GBQ, UNK

REACTIONS (5)
  - Acute myeloid leukaemia [Fatal]
  - Product use issue [Recovered/Resolved]
  - Myelodysplastic syndrome [Fatal]
  - Product use in unapproved indication [Recovered/Resolved]
  - Neoplasm progression [Fatal]
